FAERS Safety Report 7751604-X (Version None)
Quarter: 2011Q3

REPORT INFORMATION
  Report Type: 
  Country: None (occurrence: None)
  Receive Date: 20110914
  Receipt Date: 20110909
  Transmission Date: 20111222
  Serious: Yes (Hospitalization)
  Sender: FDA-Public Use
  Company Number: PHEH2011US03826

PATIENT
  Sex: Male
  Weight: 129 kg

DRUGS (11)
  1. ASPIRIN ^BAYER^ DELAYED RELEASE [Concomitant]
  2. EXJADE [Suspect]
     Indication: HAEMOCHROMATOSIS
     Dosage: 2000 MG, DAILY
     Route: 048
     Dates: start: 20110817
  3. ACETAMINOPHEN AND HYDROCODONE BITARTRATE [Concomitant]
  4. SIMVASTATIN [Concomitant]
  5. HYDROXYZINE [Concomitant]
  6. ALLOPURINOL [Concomitant]
  7. FISH OIL POTENCY [Concomitant]
  8. NEURONTIN [Concomitant]
  9. EXJADE [Suspect]
     Indication: MYELODYSPLASTIC SYNDROME
  10. ACTOS [Concomitant]
  11. LASIX [Concomitant]

REACTIONS (1)
  - DEHYDRATION [None]
